FAERS Safety Report 12648937 (Version 1)
Quarter: 2016Q3

REPORT INFORMATION
  Report Type: Spontaneous
  Country: DE (occurrence: DE)
  Receive Date: 20160812
  Receipt Date: 20160812
  Transmission Date: 20161109
  Serious: Yes (Other)
  Sender: FDA-Public Use
  Company Number: DE-GILEAD-2016-0226947

PATIENT
  Age: 74 Year
  Sex: Male

DRUGS (1)
  1. ZYDELIG [Suspect]
     Active Substance: IDELALISIB
     Indication: CHRONIC LYMPHOCYTIC LEUKAEMIA
     Dosage: 150 MG, UNK
     Route: 048
     Dates: start: 2015, end: 2016

REACTIONS (3)
  - Chronic lymphocytic leukaemia [Unknown]
  - Immune thrombocytopenic purpura [Not Recovered/Not Resolved]
  - Enteritis [Recovering/Resolving]
